FAERS Safety Report 11663421 (Version 1)
Quarter: 2015Q4

REPORT INFORMATION
  Report Type: Spontaneous
  Country: US (occurrence: None)
  Receive Date: 20151026
  Receipt Date: 20151026
  Transmission Date: 20160304
  Serious: No
  Sender: FDA-Public Use
  Company Number: None

PATIENT
  Age: 70 Year
  Sex: Female
  Weight: 85.28 kg

DRUGS (11)
  1. CLOPIDOGREL [Suspect]
     Active Substance: CLOPIDOGREL BISULFATE
     Indication: ANTICOAGULANT THERAPY
     Dates: start: 20151025, end: 20151025
  2. VITAMIN B6 [Suspect]
     Active Substance: PYRIDOXINE HYDROCHLORIDE
  3. PROVASTATIN [Concomitant]
  4. HCTZ [Concomitant]
     Active Substance: HYDROCHLOROTHIAZIDE
  5. VIT D2000 [Concomitant]
  6. PLAVIX [Concomitant]
     Active Substance: CLOPIDOGREL BISULFATE
  7. PROTONIX [Concomitant]
     Active Substance: PANTOPRAZOLE SODIUM
  8. VIT D50,000 [Concomitant]
  9. CLOPIDOGREL [Suspect]
     Active Substance: CLOPIDOGREL BISULFATE
     Indication: ARTERIAL DISORDER
     Dates: start: 20151025, end: 20151025
  10. ASPIRIN. [Concomitant]
     Active Substance: ASPIRIN
  11. TELMISARTAN. [Concomitant]
     Active Substance: TELMISARTAN

REACTIONS (5)
  - Oral discomfort [None]
  - Product contamination [None]
  - Product substitution issue [None]
  - Product odour abnormal [None]
  - Product solubility abnormal [None]

NARRATIVE: CASE EVENT DATE: 20151025
